FAERS Safety Report 5136411-9 (Version None)
Quarter: 2006Q4

REPORT INFORMATION
  Report Type: 
  Country: None (occurrence: None)
  Receive Date: 20061027
  Receipt Date: 20061016
  Transmission Date: 20070319
  Serious: Yes (Other)
  Sender: FDA-Public Use
  Company Number: PHBS2006IT16072

PATIENT
  Age: 42 Year
  Sex: Male

DRUGS (4)
  1. EVEROLIMUS [Concomitant]
     Indication: RENAL TRANSPLANT
     Dosage: 1 MG, BID
     Route: 065
  2. STEROIDS NOS [Suspect]
     Indication: RENAL TRANSPLANT
  3. SIMULECT [Concomitant]
     Indication: RENAL TRANSPLANT
  4. CYCLOSPORINE [Suspect]
     Indication: RENAL TRANSPLANT
     Dosage: 100 MG, BID
     Route: 065

REACTIONS (5)
  - BONE DENSITY DECREASED [None]
  - GAIT DISTURBANCE [None]
  - OSTEOPOROSIS [None]
  - PAIN [None]
  - PAIN IN EXTREMITY [None]
